FAERS Safety Report 9222122 (Version 3)
Quarter: 2013Q4

REPORT INFORMATION
  Report Type: Spontaneous
  Country: US (occurrence: US)
  Receive Date: 20130410
  Receipt Date: 20131218
  Transmission Date: 20140711
  Serious: Yes (Hospitalization, Other)
  Sender: FDA-Public Use
  Company Number: US-INCYTE CORPORATION-2013IN000701

PATIENT
  Age: 73 Year
  Sex: Male

DRUGS (3)
  1. JAKAFI [Suspect]
     Indication: MYELOFIBROSIS
     Dosage: 15 MG, BID
     Route: 048
     Dates: start: 20111223, end: 20130613
  2. DANAZOL [Concomitant]
  3. THALIDOMIDE [Concomitant]

REACTIONS (7)
  - Dyspnoea [Recovered/Resolved]
  - Pneumonia fungal [Recovered/Resolved]
  - Mucosal inflammation [Recovered/Resolved]
  - Splenomegaly [Recovering/Resolving]
  - Platelet count decreased [Unknown]
  - White blood cell count decreased [Unknown]
  - Blood count abnormal [Unknown]
